FAERS Safety Report 6321796-8 (Version None)
Quarter: 2009Q3

REPORT INFORMATION
  Report Type: 
  Country: None (occurrence: None)
  Receive Date: 20090821
  Receipt Date: 20090821
  Transmission Date: 20100115
  Serious: Yes (Hospitalization, Other)
  Sender: FDA-Public Use
  Company Number: None

PATIENT
  Age: 30 Year
  Sex: Female
  Weight: 74.8435 kg

DRUGS (1)
  1. ZYVOX [Suspect]
     Indication: CYSTITIS
     Dosage: 600 MG 2X A DAY FOR 5 DAYS ONLY TOOK 5 PILLS
     Dates: start: 20090807, end: 20090809

REACTIONS (6)
  - CONVULSION [None]
  - FEELING ABNORMAL [None]
  - HYPOAESTHESIA [None]
  - HYPOAESTHESIA ORAL [None]
  - INSOMNIA [None]
  - VISION BLURRED [None]
